FAERS Safety Report 6762925-1 (Version None)
Quarter: 2010Q2

REPORT INFORMATION
  Report Type: 
  Country: None (occurrence: None)
  Receive Date: 20100608
  Receipt Date: 20100608
  Transmission Date: 20101027
  Serious: Yes (Hospitalization)
  Sender: FDA-Public Use
  Company Number: None

PATIENT
  Age: 81 Year
  Sex: Female
  Weight: 39.0093 kg

DRUGS (11)
  1. ABRAXANE [Suspect]
     Indication: SMALL CELL LUNG CANCER EXTENSIVE STAGE
     Dosage: 319 MG, Q 3 WEEKS, IV
     Route: 042
     Dates: start: 20100412
  2. ABRAXANE [Suspect]
     Indication: SMALL CELL LUNG CANCER EXTENSIVE STAGE
     Dosage: 319 MG, Q 3 WEEKS, IV
     Route: 042
     Dates: start: 20100503
  3. ABRAXANE [Suspect]
     Indication: SMALL CELL LUNG CANCER EXTENSIVE STAGE
     Dosage: 319 MG, Q 3 WEEKS, IV
     Route: 042
     Dates: start: 20100524
  4. CARBOPLATIN [Suspect]
     Indication: SMALL CELL LUNG CANCER EXTENSIVE STAGE
     Dosage: AUC 6 Q3 WEEKS IV
     Route: 042
     Dates: start: 20100412
  5. CARBOPLATIN [Suspect]
     Indication: SMALL CELL LUNG CANCER EXTENSIVE STAGE
     Dosage: AUC 6 Q3 WEEKS IV
     Route: 042
     Dates: start: 20100503
  6. CARBOPLATIN [Suspect]
     Indication: SMALL CELL LUNG CANCER EXTENSIVE STAGE
     Dosage: AUC 6 Q3 WEEKS IV
     Route: 042
     Dates: start: 20100524
  7. ASPIRIN [Concomitant]
  8. PLAVIX [Concomitant]
  9. BYSTOLIC [Concomitant]
  10. SIMVASTATIN [Concomitant]
  11. BENICAR [Concomitant]

REACTIONS (1)
  - SYNCOPE [None]
